FAERS Safety Report 23142996 (Version 1)
Quarter: 2023Q4

REPORT INFORMATION
  Report Type: Spontaneous
  Country: US (occurrence: None)
  Receive Date: 20231102
  Receipt Date: 20231102
  Transmission Date: 20240110
  Serious: Yes (Disabling)
  Sender: FDA-Public Use
  Company Number: None

PATIENT
  Age: 69 Year
  Sex: Male
  Weight: 69.75 kg

DRUGS (13)
  1. RANITIDINE [Suspect]
     Active Substance: RANITIDINE
     Indication: Gastrooesophageal reflux disease
     Dosage: OTHER QUANTITY : 1 TABLET(S);?FREQUENCY : EVERY 12 HOURS;?
     Route: 048
  2. LORAZEPAM [Concomitant]
     Active Substance: LORAZEPAM
  3. MONTELUKAST [Concomitant]
     Active Substance: MONTELUKAST SODIUM
  4. LISINOPRIL [Concomitant]
     Active Substance: LISINOPRIL
  5. ketofein [Concomitant]
  6. extrazine [Concomitant]
  7. FUROSEMIDE [Concomitant]
     Active Substance: FUROSEMIDE
  8. FLUTICASONE [Concomitant]
     Active Substance: FLUTICASONE
  9. OMEPRAZOLE [Concomitant]
     Active Substance: OMEPRAZOLE
  10. QUETIAPINE [Concomitant]
     Active Substance: QUETIAPINE
  11. SERTRALINE [Concomitant]
     Active Substance: SERTRALINE HYDROCHLORIDE
  12. TOPIRAMATE [Concomitant]
     Active Substance: TOPIRAMATE
  13. VITAMIN B12 [Concomitant]
     Active Substance: CYANOCOBALAMIN

REACTIONS (2)
  - Tooth infection [None]
  - Tooth extraction [None]
